FAERS Safety Report 9856942 (Version 4)
Quarter: 2014Q2

REPORT INFORMATION
  Report Type: Spontaneous
  Country: US (occurrence: None)
  Receive Date: 20140128
  Receipt Date: 20140520
  Transmission Date: 20141212
  Serious: Yes (Death)
  Sender: FDA-Public Use
  Company Number: ZYD-14-AE-016

PATIENT
  Sex: Male

DRUGS (2)
  1. RISPERIDONE [Suspect]
     Indication: MENTAL DISORDER
     Dates: start: 2011, end: 2012
  2. RISPERDAL [Suspect]
     Indication: MENTAL DISORDER
     Dates: start: 2011

REACTIONS (2)
  - Breast swelling [None]
  - Hepatic cancer stage IV [None]
